FAERS Safety Report 10515030 (Version 2)
Quarter: 2014Q4

REPORT INFORMATION
  Report Type: Report from Study
  Country: GT (occurrence: GT)
  Receive Date: 20141013
  Receipt Date: 20141123
  Transmission Date: 20150528
  Serious: Yes (Other)
  Sender: FDA-Public Use
  Company Number: PHHY2014GT132705

PATIENT
  Age: 13 Year
  Sex: Male
  Weight: 45 kg

DRUGS (4)
  1. EXJADE [Suspect]
     Active Substance: DEFERASIROX
     Dosage: 500 MG, Q12H
     Route: 048
     Dates: start: 2013
  2. EXJADE [Suspect]
     Active Substance: DEFERASIROX
     Indication: IRON OVERLOAD
     Dosage: 3 DF, DAILY (2 AM AND 1 PM)
     Route: 048
  3. DAYAMINERAL [Concomitant]
     Indication: PRODUCT USED FOR UNKNOWN INDICATION
     Dosage: 1 TSP, QD
     Route: 048
  4. FOLIC ACID. [Concomitant]
     Active Substance: FOLIC ACID
     Indication: PRODUCT USED FOR UNKNOWN INDICATION
     Dosage: 1 DF, QD
     Route: 048

REACTIONS (8)
  - Renal cyst [Recovering/Resolving]
  - Bone pain [Unknown]
  - Chromaturia [Recovered/Resolved]
  - Back pain [Recovered/Resolved]
  - Bone disorder [Unknown]
  - Fall [Unknown]
  - Back injury [Unknown]
  - Chest pain [Recovered/Resolved]
